FAERS Safety Report 18079431 (Version 2)
Quarter: 2020Q3

REPORT INFORMATION
  Report Type: Spontaneous
  Country: ES (occurrence: ES)
  Receive Date: 20200728
  Receipt Date: 20200731
  Transmission Date: 20201103
  Serious: Yes (Death, Other)
  Sender: FDA-Public Use
  Company Number: ES-PFIZER INC-2020283624

PATIENT
  Age: 53 Year
  Sex: Female

DRUGS (2)
  1. CARBOPLATIN. [Suspect]
     Active Substance: CARBOPLATIN
     Indication: LUNG NEOPLASM MALIGNANT
     Dosage: UNK, CYCLIC (FOUR CYCLES (AREA UNDER CURVE 5))
     Route: 065
     Dates: start: 201401, end: 201404
  2. MYOCET [Suspect]
     Active Substance: DOXORUBICIN
     Indication: LUNG NEOPLASM MALIGNANT
     Dosage: 60 MG/M2
     Route: 065
     Dates: start: 201401, end: 201404

REACTIONS (9)
  - Bicytopenia [Unknown]
  - Petechiae [Unknown]
  - Second primary malignancy [Unknown]
  - Anaemia [Unknown]
  - General physical health deterioration [Unknown]
  - Death [Fatal]
  - Acute myeloid leukaemia [Unknown]
  - Thrombocytopenia [Unknown]
  - Epistaxis [Unknown]

NARRATIVE: CASE EVENT DATE: 201403
